FAERS Safety Report 5528598-0 (Version None)
Quarter: 2007Q4

REPORT INFORMATION
  Report Type: 
  Country: None (occurrence: None)
  Receive Date: 20071121
  Receipt Date: 20071109
  Transmission Date: 20080405
  Serious: Yes (Hospitalization)
  Sender: FDA-Public Use
  Company Number: 200710663GDDC

PATIENT
  Age: 82 Year
  Sex: Female
  Weight: 73.7 kg

DRUGS (4)
  1. FORTEO [Suspect]
     Indication: OSTEOPOROSIS
     Dosage: 20 UG/DAY SC
     Route: 058
     Dates: start: 20051111, end: 20060518
  2. ATACAND [Concomitant]
  3. ZANTAC [Concomitant]
  4. LOVAN [Concomitant]

REACTIONS (2)
  - CALCULUS URETERIC [None]
  - NEPHROLITHIASIS [None]
